FAERS Safety Report 5384089-1 (Version None)
Quarter: 2007Q3

REPORT INFORMATION
  Report Type: 
  Country: None (occurrence: None)
  Receive Date: 20070711
  Receipt Date: 20070706
  Transmission Date: 20080115
  Serious: Yes (Death, Other)
  Sender: FDA-Public Use
  Company Number: GB-AVENTIS-200418322GDDC

PATIENT
  Age: 71 Year
  Sex: Male

DRUGS (4)
  1. LANTUS [Suspect]
     Route: 058
     Dates: start: 20040813
  2. OPTIPEN (INSULIN PUMP) [Suspect]
  3. AUTOPEN INSULIN INJECTION PEN [Suspect]
  4. INSULIN NOS [Concomitant]

REACTIONS (5)
  - ACIDOSIS [None]
  - ATRIAL FIBRILLATION [None]
  - BLOOD GLUCOSE INCREASED [None]
  - CARDIO-RESPIRATORY ARREST [None]
  - MYOCARDIAL INFARCTION [None]
